FAERS Safety Report 10403346 (Version 1)
Quarter: 2014Q3

REPORT INFORMATION
  Report Type: Spontaneous
  Country: US (occurrence: US)
  Receive Date: 20140822
  Receipt Date: 20140822
  Transmission Date: 20150326
  Serious: Yes (Other)
  Sender: FDA-Public Use
  Company Number: US-OTSUKA-US-2014-12167

PATIENT

DRUGS (1)
  1. BUSULFEX [Suspect]
     Active Substance: BUSULFAN
     Indication: BONE MARROW TRANSPLANT
     Dosage: 66 MG MILLIGRAM(S), Q6HR
     Route: 042
     Dates: start: 20140812, end: 20140815

REACTIONS (4)
  - Medical device complication [Recovered/Resolved]
  - Drug administration error [Recovered/Resolved]
  - Central venous catheterisation [Recovered/Resolved]
  - Off label use [Unknown]

NARRATIVE: CASE EVENT DATE: 20140814
